FAERS Safety Report 24191823 (Version 2)
Quarter: 2024Q3

REPORT INFORMATION
  Report Type: Spontaneous
  Country: FI (occurrence: FI)
  Receive Date: 20240809
  Receipt Date: 20240910
  Transmission Date: 20241016
  Serious: Yes (Hospitalization)
  Sender: JOHNSON AND JOHNSON
  Company Number: FI-JNJFOC-20240802121

PATIENT
  Age: 68 Year
  Sex: Male

DRUGS (1)
  1. STELARA [Suspect]
     Active Substance: USTEKINUMAB
     Indication: Colitis ulcerative
     Route: 058
     Dates: start: 2024

REACTIONS (6)
  - Seizure [Unknown]
  - Pyrexia [Unknown]
  - Pain [Unknown]
  - Diarrhoea [Unknown]
  - Drug delivery system malfunction [Unknown]
  - Product dose omission issue [Unknown]
